FAERS Safety Report 24669246 (Version 1)
Quarter: 2024Q4

REPORT INFORMATION
  Report Type: Report from Study
  Country: US (occurrence: US)
  Receive Date: 20241127
  Receipt Date: 20241127
  Transmission Date: 20250115
  Serious: Yes (Other)
  Sender: ROCHE
  Company Number: US-ROCHE-3402873

PATIENT
  Age: 49 Year
  Sex: Female
  Weight: 122.47 kg

DRUGS (29)
  1. OCREVUS [Suspect]
     Active Substance: OCRELIZUMAB
     Indication: Relapsing-remitting multiple sclerosis
     Dosage: SECOND HALF OF THE DOSE WAS GIVEN ON 22/JAN/2021., 5/2021 ,11/2021(AS PER NID-1001065125,PTINFUSED O
     Route: 042
     Dates: start: 20210108
  2. OCREVUS [Suspect]
     Active Substance: OCRELIZUMAB
     Dosage: DATE OF MOST RECENT INFUSION WAS ON 23/JUL/2021, 28/JAN/2022, 29/JUL/2022, 03/FEB/2023, 18/AUG/2023
     Route: 042
     Dates: start: 20210723
  3. AMITRIPTYLINE [Concomitant]
     Active Substance: AMITRIPTYLINE
  4. PANTOPRAZOLE [Concomitant]
     Active Substance: PANTOPRAZOLE
  5. LISINOPRIL [Concomitant]
     Active Substance: LISINOPRIL
  6. LEXAPRO [Concomitant]
     Active Substance: ESCITALOPRAM OXALATE
  7. VITAMIN B6 [Concomitant]
     Active Substance: PYRIDOXINE HYDROCHLORIDE
  8. POTASSIUM CHLORIDE [Concomitant]
     Active Substance: POTASSIUM CHLORIDE
  9. FUROSEMIDE [Concomitant]
     Active Substance: FUROSEMIDE
  10. LEVOTHYROXINE [Concomitant]
     Active Substance: LEVOTHYROXINE
  11. FAMOTIDINE [Concomitant]
     Active Substance: FAMOTIDINE
  12. MECLIZINE [Concomitant]
     Active Substance: MECLIZINE HYDROCHLORIDE
  13. FLEXERIL [Concomitant]
     Active Substance: CYCLOBENZAPRINE HYDROCHLORIDE
  14. DORZOLAMIDE [Concomitant]
     Active Substance: DORZOLAMIDE
  15. COMBIGAN [Concomitant]
     Active Substance: BRIMONIDINE TARTRATE\TIMOLOL MALEATE
  16. XIFAXAN [Concomitant]
     Active Substance: RIFAXIMIN
  17. ESCITALOPRAM OXALATE [Concomitant]
     Active Substance: ESCITALOPRAM OXALATE
  18. IPRATROPIUM BROMIDE [Concomitant]
     Active Substance: IPRATROPIUM BROMIDE
  19. LASIX [Concomitant]
     Active Substance: FUROSEMIDE
  20. PRINIVIL [Concomitant]
     Active Substance: LISINOPRIL
  21. PROTONIX [Concomitant]
     Active Substance: PANTOPRAZOLE SODIUM
  22. ESTRACE [Concomitant]
     Active Substance: ESTRADIOL
  23. GABAPENTIN [Concomitant]
     Active Substance: GABAPENTIN
  24. LIDOCAINE [Concomitant]
     Active Substance: LIDOCAINE
  25. VITAMIN D3 [Concomitant]
     Active Substance: CHOLECALCIFEROL
  26. COPAXONE [Concomitant]
     Active Substance: GLATIRAMER ACETATE
  27. TYLENOL [Concomitant]
     Active Substance: ACETAMINOPHEN
  28. METHYLPREDNISOLONE [Concomitant]
     Active Substance: METHYLPREDNISOLONE
  29. BENADRYL [Concomitant]
     Active Substance: DIPHENHYDRAMINE HYDROCHLORIDE

REACTIONS (20)
  - Postural orthostatic tachycardia syndrome [Not Recovered/Not Resolved]
  - Hepatic steatosis [Not Recovered/Not Resolved]
  - Hypothyroidism [Not Recovered/Not Resolved]
  - Irritable bowel syndrome [Not Recovered/Not Resolved]
  - Impaired gastric emptying [Not Recovered/Not Resolved]
  - Sleep apnoea syndrome [Not Recovered/Not Resolved]
  - Fibromyalgia [Not Recovered/Not Resolved]
  - Central pain syndrome [Not Recovered/Not Resolved]
  - Weight increased [Not Recovered/Not Resolved]
  - Swelling [Not Recovered/Not Resolved]
  - Dizziness [Not Recovered/Not Resolved]
  - Nystagmus [Not Recovered/Not Resolved]
  - Cholelithiasis [Unknown]
  - Dyspnoea [Not Recovered/Not Resolved]
  - COVID-19 [Recovering/Resolving]
  - Progressive multiple sclerosis [Unknown]
  - Infusion related reaction [Recovered/Resolved]
  - Disability [Not Recovered/Not Resolved]
  - Off label use [Unknown]
  - Gastrointestinal microorganism overgrowth [Not Recovered/Not Resolved]

NARRATIVE: CASE EVENT DATE: 20220101
